FAERS Safety Report 5476065-5 (Version None)
Quarter: 2007Q4

REPORT INFORMATION
  Report Type: 
  Country: None (occurrence: None)
  Receive Date: 20071003
  Receipt Date: 20070925
  Transmission Date: 20080405
  Serious: Yes (Death)
  Sender: FDA-Public Use
  Company Number: US-SANOFI-SYNTHELABO-A03200704574

PATIENT
  Sex: Female
  Weight: 53.18 kg

DRUGS (9)
  1. PLAVIX [Suspect]
     Indication: CAROTID ARTERY STENOSIS
     Route: 048
     Dates: start: 20040101, end: 20070114
  2. PLAVIX [Suspect]
     Indication: CORONARY ARTERY DISEASE
     Route: 048
     Dates: start: 20040101, end: 20070114
  3. ACIPHEX [Concomitant]
     Indication: GASTROOESOPHAGEAL REFLUX DISEASE
     Dosage: UNK
     Route: 065
  4. AMITRIPTYLINE HCL [Concomitant]
     Indication: ANXIETY
     Dosage: UNK
     Route: 065
  5. ASPIRIN [Concomitant]
     Indication: ANTICOAGULANT THERAPY
     Route: 065
  6. XANAX [Concomitant]
     Indication: ANXIETY
     Dosage: UNK
     Route: 065
  7. PREMARIN [Concomitant]
     Indication: HORMONE REPLACEMENT THERAPY
     Dosage: UNK
     Route: 065
  8. PAXIL [Concomitant]
     Indication: DEPRESSION
     Dosage: UNK
     Route: 065
  9. ZOCOR [Concomitant]
     Indication: LIPIDS INCREASED
     Dosage: UNK
     Route: 065

REACTIONS (1)
  - ROAD TRAFFIC ACCIDENT [None]
